FAERS Safety Report 18583216 (Version 2)
Quarter: 2020Q4

REPORT INFORMATION
  Report Type: Spontaneous
  Country: US (occurrence: US)
  Receive Date: 20201206
  Receipt Date: 20201222
  Transmission Date: 20210114
  Serious: No
  Sender: FDA-Public Use
  Company Number: US-AMGEN-USASP2020195666

PATIENT
  Age: 34 Year
  Sex: Female
  Weight: 128.35 kg

DRUGS (1)
  1. AIMOVIG [Suspect]
     Active Substance: ERENUMAB-AOOE
     Indication: MIGRAINE WITHOUT AURA
     Dosage: 140 MILLIGRAM
     Route: 065
     Dates: start: 20201104

REACTIONS (5)
  - Device difficult to use [Unknown]
  - Migraine [Not Recovered/Not Resolved]
  - Headache [Unknown]
  - Injection site bruising [Not Recovered/Not Resolved]
  - Wrong technique in product usage process [Unknown]

NARRATIVE: CASE EVENT DATE: 202011
